FAERS Safety Report 5809550-4 (Version None)
Quarter: 2008Q3

REPORT INFORMATION
  Report Type: 
  Country: None (occurrence: None)
  Receive Date: 20080707
  Receipt Date: 20071002
  Transmission Date: 20090109
  Serious: Yes (Congenital Anomaly)
  Sender: FDA-Public Use
  Company Number: 522526

PATIENT

DRUGS (3)
  1. CELLCEPT [Suspect]
     Indication: LIVER TRANSPLANT
     Dates: start: 20000101
  2. PROGRAF [Concomitant]
  3. MULTIPLE OTHER MEDICATIONS (GENERIC UNKNOWN) [Concomitant]

REACTIONS (1)
  - CONGENITAL ANOMALY [None]
